FAERS Safety Report 25365111 (Version 1)
Quarter: 2025Q2

REPORT INFORMATION
  Report Type: Spontaneous
  Country: US (occurrence: US)
  Receive Date: 20250527
  Receipt Date: 20250527
  Transmission Date: 20250717
  Serious: Yes (Other)
  Sender: SANOFI AVENTIS
  Company Number: US-SA-2025SA148862

PATIENT
  Age: 73 Year
  Sex: Male

DRUGS (9)
  1. KEVZARA [Suspect]
     Active Substance: SARILUMAB
     Indication: Polymyalgia rheumatica
     Dosage: 200 MG, QOW
     Route: 058
     Dates: start: 202502, end: 2025
  2. KEVZARA [Suspect]
     Active Substance: SARILUMAB
     Dates: start: 202504
  3. CIALIS [Concomitant]
     Active Substance: TADALAFIL
  4. GLUCOSAMINE [Concomitant]
     Active Substance: GLUCOSAMINE
  5. VITAMINS [Concomitant]
     Active Substance: VITAMINS
  6. LOSARTAN POTASSIUM [Concomitant]
     Active Substance: LOSARTAN POTASSIUM
  7. TADALAFIL [Concomitant]
     Active Substance: TADALAFIL
  8. TAMSULOSIN HYDROCHLORIDE [Concomitant]
     Active Substance: TAMSULOSIN HYDROCHLORIDE
  9. TRULICITY [Concomitant]
     Active Substance: DULAGLUTIDE

REACTIONS (6)
  - Pneumonia [Unknown]
  - Oropharyngeal pain [Unknown]
  - Rhinorrhoea [Unknown]
  - Injection site swelling [Unknown]
  - Injection site erythema [Unknown]
  - Urinary tract infection [Unknown]

NARRATIVE: CASE EVENT DATE: 20250101
